FAERS Safety Report 15308810 (Version 2)
Quarter: 2019Q2

REPORT INFORMATION
  Report Type: Report from Study
  Country: None (occurrence: NZ)
  Receive Date: 20180822
  Receipt Date: 20190530
  Transmission Date: 20190711
  Serious: Yes (Hospitalization)
  Sender: FDA-Public Use
  Company Number: NZ-ABBVIE-18S-118-2452491-00

PATIENT
  Age: 67 Year
  Sex: Male
  Weight: 62 kg

DRUGS (11)
  1. SINEMET [Concomitant]
     Active Substance: CARBIDOPA\LEVODOPA
     Indication: PARKINSON^S DISEASE
     Dosage: 25/100MG
     Route: 048
     Dates: start: 20130101
  2. CELECOXIB. [Concomitant]
     Active Substance: CELECOXIB
     Indication: MUSCULOSKELETAL PAIN
  3. GABAPENTIN. [Concomitant]
     Active Substance: GABAPENTIN
     Indication: MUSCULOSKELETAL PAIN
     Route: 048
     Dates: start: 20170721
  4. PYRIDOXINE [Concomitant]
     Active Substance: PYRIDOXINE
     Indication: VITAMIN B6 DEFICIENCY
     Route: 048
     Dates: start: 20160713
  5. AMITRIPTYLINE [Concomitant]
     Active Substance: AMITRIPTYLINE
     Indication: SLEEP DISORDER
     Dosage: NOCTE
     Route: 048
     Dates: start: 20150101
  6. DUODOPA [Suspect]
     Active Substance: CARBIDOPA\LEVODOPA
     Indication: PARKINSON^S DISEASE
     Route: 050
  7. LORATADINE. [Concomitant]
     Active Substance: LORATADINE
     Indication: SEASONAL ALLERGY
     Dosage: NOCTE
     Route: 048
     Dates: start: 19860101
  8. GABAPENTIN. [Concomitant]
     Active Substance: GABAPENTIN
     Indication: NECK PAIN
  9. CEFACLOR. [Concomitant]
     Active Substance: CEFACLOR
     Indication: STOMA SITE INFECTION
     Route: 048
     Dates: start: 20180208, end: 20180708
  10. CLONAZEPAM. [Concomitant]
     Active Substance: CLONAZEPAM
     Indication: SLEEP DISORDER
     Dosage: NOCTE
     Route: 048
     Dates: start: 20150101
  11. CELECOXIB. [Concomitant]
     Active Substance: CELECOXIB
     Indication: NECK PAIN
     Route: 048
     Dates: start: 20170824

REACTIONS (4)
  - Device issue [Recovered/Resolved]
  - Cellulitis [Recovered/Resolved]
  - Constipation [Unknown]
  - Stoma site discharge [Recovered/Resolved]

NARRATIVE: CASE EVENT DATE: 20180721
